FAERS Safety Report 12345546 (Version 1)
Quarter: 2016Q2

REPORT INFORMATION
  Report Type: Spontaneous
  Country: ES (occurrence: ES)
  Receive Date: 20160509
  Receipt Date: 20160509
  Transmission Date: 20160815
  Serious: Yes (Hospitalization, Other)
  Sender: FDA-Public Use
  Company Number: ES-CIPLA LTD.-2016ES04555

PATIENT

DRUGS (19)
  1. FLUOROURACIL. [Suspect]
     Active Substance: FLUOROURACIL
     Dosage: 3000 MG/M2, VIA AMBULATORY PUMP FOR A PERIOD OF 46 HOURS EVERY 2 WEEKS
     Route: 065
     Dates: start: 201310
  2. GRANISETRON [Concomitant]
     Active Substance: GRANISETRON
     Indication: PROPHYLAXIS OF NAUSEA AND VOMITING
     Dosage: UNK
     Route: 065
  3. DEXAMETHASONE. [Concomitant]
     Active Substance: DEXAMETHASONE
     Indication: PROPHYLAXIS OF NAUSEA AND VOMITING
     Dosage: UNK
     Route: 065
  4. FLUOROURACIL. [Suspect]
     Active Substance: FLUOROURACIL
     Indication: COLON CANCER STAGE III
     Dosage: 400 MG/M2, LOADING DOSE FOR TWELVE CYCLES
     Route: 040
     Dates: end: 201112
  5. FOLINIC ACID [Suspect]
     Active Substance: LEUCOVORIN
     Dosage: 400 MG/M2, 2-HOUR INFUSION ON DAY 1
  6. FOLINIC ACID [Suspect]
     Active Substance: LEUCOVORIN
     Dosage: 400 MG/M2, 2-HOUR INFUSION ON DAY 1
     Dates: start: 201310
  7. OXALIPLATIN. [Suspect]
     Active Substance: OXALIPLATIN
     Indication: COLON CANCER STAGE III
     Dosage: 85 MG/M2, 2-HOUR INFUSION ON DAY 1 FOR TWELVE CYCLES
     Dates: end: 201112
  8. FLUOROURACIL. [Suspect]
     Active Substance: FLUOROURACIL
     Dosage: 400 MG/M2, LOADING DOSE ON DAY 1
     Route: 040
  9. ATROPINE. [Concomitant]
     Active Substance: ATROPINE
     Indication: PROPHYLAXIS
     Dosage: UNK
     Route: 065
  10. IRINOTECAN [Suspect]
     Active Substance: IRINOTECAN
     Indication: COLON CANCER STAGE III
     Dosage: 180 MG/M2, 2-HOUR INFUSION ON DAY
  11. FLUOROURACIL. [Suspect]
     Active Substance: FLUOROURACIL
     Dosage: 3000 MG/M2, ADMINISTERED VIA AMBULATORY PUMP FOR A PERIOD OF 46 HOURS
     Route: 065
  12. OXALIPLATIN. [Suspect]
     Active Substance: OXALIPLATIN
     Dosage: 85 MG/M2, 2-HOUR INFUSION ON DAY1 (REDUCED AT 50% OF DOSE)
     Dates: start: 201310
  13. FLUOROURACIL. [Suspect]
     Active Substance: FLUOROURACIL
     Dosage: 600 MG/M2, OVER A PERIOD OF 22 HOURS ON DAY 1 AND DAY 2 EVERY 2 WEEK FOR TWELVE CYCLES
     Route: 065
     Dates: end: 201112
  14. FLUOROURACIL. [Suspect]
     Active Substance: FLUOROURACIL
     Dosage: 400 MG/M2, LOADING DOSE ON DAY 1
     Route: 040
     Dates: start: 201310
  15. FOLINIC ACID [Suspect]
     Active Substance: LEUCOVORIN
     Indication: COLON CANCER STAGE III
     Dosage: 200 MG/M2, 2-HOUR INFUSION ON DAY 1 AND DAY 2 FOR TWELVE CYCLES
     Dates: end: 201112
  16. FOLINIC ACID [Suspect]
     Active Substance: LEUCOVORIN
     Dosage: UNK
     Route: 065
  17. CETUXIMAB [Suspect]
     Active Substance: CETUXIMAB
     Indication: COLON CANCER STAGE III
     Dosage: UNK
     Route: 065
  18. OXALIPLATIN. [Suspect]
     Active Substance: OXALIPLATIN
     Dosage: UNK
     Route: 065
  19. AFLIBERCEPT [Suspect]
     Active Substance: AFLIBERCEPT
     Indication: COLON CANCER STAGE III
     Dosage: UNK
     Route: 065

REACTIONS (8)
  - Diarrhoea [Recovered/Resolved]
  - Abdominal pain [Unknown]
  - Disease progression [Unknown]
  - Nausea [Recovered/Resolved]
  - Hypersensitivity [Recovered/Resolved]
  - Dyspnoea [Unknown]
  - Neurotoxicity [Unknown]
  - Asthenia [Recovered/Resolved]
